FAERS Safety Report 24609493 (Version 3)
Quarter: 2025Q1

REPORT INFORMATION
  Report Type: Other
  Country: GB (occurrence: GB)
  Receive Date: 20241112
  Receipt Date: 20250207
  Transmission Date: 20250409
  Serious: Yes (Hospitalization, Other)
  Sender: GLENMARK
  Company Number: GB-SA-2017SA010664

PATIENT

DRUGS (35)
  1. OMEPRAZOLE [Suspect]
     Active Substance: OMEPRAZOLE
     Indication: Dyspepsia
     Route: 048
     Dates: start: 20140116
  2. OMEPRAZOLE [Suspect]
     Active Substance: OMEPRAZOLE
     Indication: Duodenal ulcer
  3. OMEPRAZOLE [Interacting]
     Active Substance: OMEPRAZOLE
     Indication: Duodenal ulcer
     Route: 065
     Dates: start: 20110616
  4. OMEPRAZOLE [Interacting]
     Active Substance: OMEPRAZOLE
     Indication: Dyspepsia
  5. OMEPRAZOLE [Interacting]
     Active Substance: OMEPRAZOLE
     Indication: Pain in extremity
  6. BOCOCIZUMAB [Suspect]
     Active Substance: BOCOCIZUMAB
     Indication: Cardiovascular disorder
     Route: 058
     Dates: start: 20150908
  7. CARVEDILOL [Suspect]
     Active Substance: CARVEDILOL
     Indication: Angina pectoris
     Dosage: 25 MILLIGRAM, BID (NUMBER OF SEPARATE DOSES: 2), CRESCENT PHARMA LIMITED
     Route: 065
     Dates: start: 20110616
  8. FUROSEMIDE [Suspect]
     Active Substance: FUROSEMIDE
     Indication: Pulmonary oedema
     Dosage: 40 MILLIGRAM, QD (NUMBER OF SEPARATE DOSES: 1), CRESCENT PHARMA LIMITED
     Route: 065
     Dates: start: 20160402
  9. FUROSEMIDE [Suspect]
     Active Substance: FUROSEMIDE
     Indication: Left ventricular dysfunction
     Dosage: 40 MILLIGRAM, QD (NUMBER OF SEPARATE DOSES: 1)
     Route: 065
     Dates: start: 20160402
  10. FUROSEMIDE [Suspect]
     Active Substance: FUROSEMIDE
     Indication: Lung disorder
     Dosage: 40 MILLIGRAM, QD (NUMBER OF SEPARATE DOSES: 1)
     Route: 065
     Dates: start: 20160402
  11. FUROSEMIDE [Suspect]
     Active Substance: FUROSEMIDE
     Indication: Pleural effusion
  12. RAMIPRIL [Suspect]
     Active Substance: RAMIPRIL
     Indication: Cardiac failure
     Dosage: 1.25 MILLIGRAM, QD (NUMBER OF SEPARATE DOSES: 1), CRESCENT PHARMA LIMITED
     Route: 048
     Dates: start: 20130813, end: 20160629
  13. RAMIPRIL [Suspect]
     Active Substance: RAMIPRIL
     Route: 065
  14. RAMIPRIL [Suspect]
     Active Substance: RAMIPRIL
     Dosage: 1 MILLIGRAM, OD (1 MG, QD)
     Route: 048
     Dates: start: 20130813, end: 20160629
  15. ISOSORBIDE MONONITRATE [Suspect]
     Active Substance: ISOSORBIDE MONONITRATE
     Indication: Angina pectoris
     Dosage: 10 MILLIGRAM, QD (NUMBER OF SEPARATE DOSES: 1)
     Route: 048
     Dates: start: 20160205
  16. IVABRADINE [Suspect]
     Active Substance: IVABRADINE
     Indication: Angina pectoris
     Dosage: 5 MILLIGRAM, BID (NUMBER OF SEPARATE DOSES: 2), CRESCENT PHARMA LIMITED
     Route: 065
     Dates: start: 20150211
  17. QUETIAPINE FUMARATE [Suspect]
     Active Substance: QUETIAPINE FUMARATE
     Indication: Depression
     Route: 048
     Dates: start: 20150826
  18. OMEPRAZOLE [Concomitant]
     Active Substance: OMEPRAZOLE
     Indication: Dyspepsia
     Route: 065
     Dates: start: 20140116
  19. ASPIRIN [Concomitant]
     Active Substance: ASPIRIN
     Indication: Cardiovascular disorder
     Route: 065
     Dates: start: 20130708
  20. ATORVASTATIN [Concomitant]
     Active Substance: ATORVASTATIN
     Indication: Cardiovascular disorder
     Route: 065
     Dates: start: 20130708
  21. NITROGLYCERIN [Concomitant]
     Active Substance: NITROGLYCERIN
     Indication: Pain
     Route: 065
     Dates: start: 20130902
  22. ACETAMINOPHEN\CODEINE PHOSPHATE [Concomitant]
     Active Substance: ACETAMINOPHEN\CODEINE PHOSPHATE
     Indication: Pain in extremity
     Route: 065
     Dates: start: 20110616
  23. BETAMETHASONE DIPROPIONATE\CLOTRIMAZOLE [Concomitant]
     Active Substance: BETAMETHASONE DIPROPIONATE\CLOTRIMAZOLE
     Indication: Psoriasis
     Route: 065
     Dates: start: 20150626
  24. METHOTREXATE [Concomitant]
     Active Substance: METHOTREXATE
     Indication: Psoriasis
     Route: 065
     Dates: start: 20150727
  25. SERTRALINE HYDROCHLORIDE [Concomitant]
     Active Substance: SERTRALINE HYDROCHLORIDE
     Indication: Depression
     Route: 065
     Dates: start: 20110816
  26. ENTRESTO [Concomitant]
     Active Substance: SACUBITRIL\VALSARTAN
     Indication: Ventricular dysfunction
     Route: 065
     Dates: start: 20160701
  27. ACETAMINOPHEN [Concomitant]
     Active Substance: ACETAMINOPHEN
     Indication: Pain in extremity
     Route: 065
     Dates: start: 20110616
  28. FOLIC ACID [Concomitant]
     Active Substance: FOLIC ACID
     Indication: Anaemia
     Route: 065
     Dates: start: 20131211
  29. QUETIAPINE FUMARATE [Concomitant]
     Active Substance: QUETIAPINE FUMARATE
     Indication: Depression
     Route: 065
     Dates: start: 20150826
  30. CODEINE PHOSPHATE [Concomitant]
     Active Substance: CODEINE PHOSPHATE
     Indication: Product used for unknown indication
     Route: 065
  31. BETAMETHASONE [Concomitant]
     Active Substance: BETAMETHASONE
     Indication: Psoriasis
     Route: 065
  32. ACETAMINOPHEN [Concomitant]
     Active Substance: ACETAMINOPHEN
     Indication: Pain in extremity
     Route: 065
     Dates: start: 20110616
  33. ACETAMINOPHEN [Concomitant]
     Active Substance: ACETAMINOPHEN
     Indication: Pain in extremity
     Route: 065
     Dates: start: 20110616
  34. SACUBITRIL [Concomitant]
     Active Substance: SACUBITRIL
     Indication: Left ventricular dysfunction
     Route: 048
     Dates: start: 20160601
  35. SACUBITRIL [Concomitant]
     Active Substance: SACUBITRIL
     Route: 048
     Dates: start: 20160701

REACTIONS (13)
  - Cardiac failure [Unknown]
  - Psoriasis [Unknown]
  - Contusion [Recovered/Resolved]
  - Fluid retention [Not Recovered/Not Resolved]
  - Hypotension [Recovered/Resolved]
  - Pulmonary oedema [Unknown]
  - Presyncope [Unknown]
  - Ventricular dysfunction [Unknown]
  - Drug interaction [Recovered/Resolved]
  - Contusion [Recovered/Resolved]
  - Angina pectoris [Unknown]
  - Anaemia [Unknown]
  - Oedema peripheral [Not Recovered/Not Resolved]

NARRATIVE: CASE EVENT DATE: 20130919
